FAERS Safety Report 4907516-X (Version None)
Quarter: 2006Q1

REPORT INFORMATION
  Report Type: 
  Country: None (occurrence: None)
  Receive Date: 20060210
  Receipt Date: 20060130
  Transmission Date: 20060701
  Serious: Yes (Hospitalization)
  Sender: FDA-Public Use
  Company Number: US-MERCK-0602USA00031

PATIENT
  Age: 77 Year
  Sex: Female
  Weight: 61 kg

DRUGS (17)
  1. VIOXX [Suspect]
     Indication: BACK PAIN
     Route: 048
     Dates: start: 20000306, end: 20040917
  2. VIOXX [Suspect]
     Route: 048
     Dates: start: 20000306, end: 20040917
  3. VIOXX [Suspect]
     Route: 048
     Dates: start: 20000306, end: 20040917
  4. VIOXX [Suspect]
     Route: 048
     Dates: start: 20000306, end: 20040917
  5. ATENOLOL [Concomitant]
     Route: 065
  6. MICROX [Concomitant]
     Route: 065
  7. DIAZEPAM [Concomitant]
     Route: 065
  8. FOSAMAX [Concomitant]
     Route: 065
  9. GLYNASE [Concomitant]
     Route: 065
  10. SINEMET [Concomitant]
     Route: 065
  11. LIPITOR [Concomitant]
     Route: 065
  12. SYNTHROID [Concomitant]
     Route: 065
  13. MYSOLINE [Concomitant]
     Route: 065
  14. HYDROCHLOROTHIAZIDE [Concomitant]
     Route: 065
  15. ASPIRIN [Concomitant]
     Route: 065
  16. TYLENOL (CAPLET) [Concomitant]
     Route: 065
  17. GLYBURIDE [Concomitant]
     Route: 065

REACTIONS (2)
  - PRESCRIBED OVERDOSE [None]
  - THALAMIC INFARCTION [None]
